FAERS Safety Report 11801294 (Version 1)
Quarter: 2015Q4

REPORT INFORMATION
  Report Type: Spontaneous
  Country: US (occurrence: US)
  Receive Date: 20151204
  Receipt Date: 20151204
  Transmission Date: 20160305
  Serious: No
  Sender: FDA-Public Use
  Company Number: US-PFIZER INC-2015408641

PATIENT
  Age: 80 Year
  Sex: Female
  Weight: 64 kg

DRUGS (11)
  1. TYLENOL [Concomitant]
     Active Substance: ACETAMINOPHEN
     Indication: PAIN
     Dosage: 500 MG, 1-2 TABLETS BY MOUTH AS NEEDED
     Route: 048
  2. LAXATIVE [Concomitant]
     Active Substance: UNSPECIFIED INGREDIENT
     Dosage: UNK, AS NEEDED
  3. VALSARTAN. [Concomitant]
     Active Substance: VALSARTAN
     Indication: HYPERTENSION
     Dosage: 160 MG
     Route: 048
  4. XALATAN [Suspect]
     Active Substance: LATANOPROST
     Indication: GLAUCOMA
     Dosage: 0.005 %, 1 DROP IN LEFT EYE AT BEDTIME
     Route: 031
  5. ESTER C [Concomitant]
     Indication: EYE DISORDER
     Dosage: 500 MG, DAILY
     Route: 048
  6. CALCIUM [Concomitant]
     Active Substance: CALCIUM
     Indication: OSTEOPOROSIS
     Dosage: 1 DF, 1X/DAY
  7. CYCLOGYL [Concomitant]
     Active Substance: CYCLOPENTOLATE HYDROCHLORIDE
     Indication: INFLAMMATION
     Dosage: 2 %, ONE DROP IN LEFT EYE TWICE DAILY
     Route: 031
     Dates: start: 201510
  8. XALATAN [Suspect]
     Active Substance: LATANOPROST
     Dosage: UNK
  9. PREDNISOLONE. [Concomitant]
     Active Substance: PREDNISOLONE
     Dosage: 1 %, ONE DROP IN LEFT EYE TWICE A DAY
     Route: 031
  10. COSOPT [Concomitant]
     Active Substance: DORZOLAMIDE HYDROCHLORIDE\TIMOLOL MALEATE
     Dosage: 2X/DAY TO LEFT EYE
     Route: 031
  11. LAMOTRIGINE. [Concomitant]
     Active Substance: LAMOTRIGINE
     Dosage: 200 MG, 1X/DAY
     Route: 048

REACTIONS (4)
  - Intraocular pressure increased [Unknown]
  - Product quality issue [Recovered/Resolved]
  - Eye irritation [Recovered/Resolved]
  - Vision blurred [Unknown]

NARRATIVE: CASE EVENT DATE: 20151121
